FAERS Safety Report 21279349 (Version 4)
Quarter: 2022Q4

REPORT INFORMATION
  Report Type: Report from Study
  Country: BR (occurrence: BR)
  Receive Date: 20220901
  Receipt Date: 20221108
  Transmission Date: 20230113
  Serious: Yes (Other)
  Sender: FDA-Public Use
  Company Number: BR-JNJFOC-20220741006

PATIENT
  Sex: Female

DRUGS (2)
  1. INFLIXIMAB [Suspect]
     Active Substance: INFLIXIMAB
     Indication: Colitis ulcerative
     Route: 041
     Dates: start: 20090302
  2. REMICADE [Suspect]
     Active Substance: INFLIXIMAB
     Indication: Colitis ulcerative
     Route: 041
     Dates: start: 20090302

REACTIONS (10)
  - Lupus-like syndrome [Unknown]
  - Cerebrovascular accident [Unknown]
  - Colitis ulcerative [Unknown]
  - Arthropathy [Unknown]
  - Memory impairment [Unknown]
  - Thyroid disorder [Unknown]
  - Rhinitis [Unknown]
  - Infusion related reaction [Recovered/Resolved]
  - Therapeutic product effect decreased [Unknown]
  - Off label use [Unknown]

NARRATIVE: CASE EVENT DATE: 20110101
